FAERS Safety Report 17957612 (Version 2)
Quarter: 2020Q3

REPORT INFORMATION
  Report Type: Spontaneous
  Country: IT (occurrence: IT)
  Receive Date: 20200629
  Receipt Date: 20200727
  Transmission Date: 20201103
  Serious: Yes (Hospitalization, Other)
  Sender: FDA-Public Use
  Company Number: IT-ALEXION PHARMACEUTICALS INC.-A202009061

PATIENT
  Age: 45 Year
  Sex: Female

DRUGS (10)
  1. CYCLOPHOSPHAMIDE. [Suspect]
     Active Substance: CYCLOPHOSPHAMIDE
     Dosage: 1.5 MG/KG, UNK
     Route: 048
     Dates: start: 2018, end: 2018
  2. PREDNISONE. [Concomitant]
     Active Substance: PREDNISONE
     Dosage: 7.5 MG, QD
     Route: 065
     Dates: start: 2018
  3. CIPROFLOXACIN. [Concomitant]
     Active Substance: CIPROFLOXACIN
     Indication: ANTIBIOTIC PROPHYLAXIS
     Dosage: UNK
     Route: 065
  4. CYCLOPHOSPHAMIDE. [Suspect]
     Active Substance: CYCLOPHOSPHAMIDE
     Dosage: REDUCED DOSAGE
     Route: 065
     Dates: start: 2018, end: 2018
  5. CYCLOPHOSPHAMIDE. [Suspect]
     Active Substance: CYCLOPHOSPHAMIDE
     Indication: IMMUNOSUPPRESSANT DRUG THERAPY
     Dosage: 500 MG, UNK
     Route: 042
     Dates: start: 2018, end: 2018
  6. MYCOPHENOLATE MOFETIL. [Concomitant]
     Active Substance: MYCOPHENOLATE MOFETIL
     Indication: IMMUNOSUPPRESSANT DRUG THERAPY
     Dosage: 500 MG, BID
     Route: 065
     Dates: start: 2018
  7. METHYLPREDNISOLONE. [Concomitant]
     Active Substance: METHYLPREDNISOLONE
     Indication: IMMUNOSUPPRESSANT DRUG THERAPY
     Dosage: 500 MG, (THREE STEROID BOLUSES)
     Route: 065
     Dates: start: 2018
  8. SOLIRIS [Suspect]
     Active Substance: ECULIZUMAB
     Indication: OFF LABEL USE
     Dosage: 1200 MG, Q2W
     Route: 065
     Dates: start: 2018, end: 2018
  9. PREDNISONE. [Concomitant]
     Active Substance: PREDNISONE
     Indication: IMMUNOSUPPRESSANT DRUG THERAPY
     Dosage: 1 MG/KG, UNK
     Route: 048
     Dates: start: 2018
  10. SOLIRIS [Suspect]
     Active Substance: ECULIZUMAB
     Indication: THROMBOTIC MICROANGIOPATHY
     Dosage: 900 MG, QW FOR FIVE WEEKS
     Route: 065
     Dates: start: 2018, end: 2018

REACTIONS (7)
  - Leukopenia [Unknown]
  - Herpes zoster reactivation [Unknown]
  - Off label use [Recovered/Resolved]
  - Intravascular haemolysis [Unknown]
  - Urinary tract infection [Unknown]
  - Hyperpyrexia [Unknown]
  - Acarodermatitis [Unknown]

NARRATIVE: CASE EVENT DATE: 2018
